FAERS Safety Report 18333573 (Version 2)
Quarter: 2022Q1

REPORT INFORMATION
  Report Type: Spontaneous
  Country: US (occurrence: US)
  Receive Date: 20201001
  Receipt Date: 20220120
  Transmission Date: 20220423
  Serious: Yes (Other)
  Sender: FDA-Public Use
  Company Number: US-SAARTEMIS-SAC202009290469

PATIENT
  Age: 67 Year
  Sex: Male

DRUGS (1)
  1. ZANTAC [Suspect]
     Active Substance: RANITIDINE HYDROCHLORIDE
     Indication: Dyspepsia
     Dosage: UNK, QW
     Dates: start: 199801, end: 202001

REACTIONS (2)
  - Hepatic cancer [Unknown]
  - Colorectal cancer stage IV [Unknown]

NARRATIVE: CASE EVENT DATE: 20200201
